FAERS Safety Report 10388867 (Version 1)
Quarter: 2014Q1

REPORT INFORMATION
  Report Type: Spontaneous
  Country: US (occurrence: None)
  Receive Date: 20140306
  Receipt Date: 20140306
  Transmission Date: 20141002
  Serious: Yes (Hospitalization)
  Sender: FDA-Public Use
  Company Number: 163-21880-13101910

PATIENT
  Age: 76 Year
  Sex: Male

DRUGS (6)
  1. REVLIMID (LENALIDOMIDE) (25 MILLIGRAM, CAPSULES) [Suspect]
     Indication: PLASMA CELL MYELOMA
     Route: 048
     Dates: start: 20130927, end: 20131001
  2. HCTZ (HYDROCHLOROTHIAZIDE) [Concomitant]
  3. LOSARTAN POTASSIUM [Concomitant]
  4. MULTIVITAMINS [Concomitant]
  5. MAGNESIUM [Concomitant]
  6. DILTIAZEM HCL (DILTIAZEM HYDROCHLORIDE) [Concomitant]

REACTIONS (5)
  - Pyrexia [None]
  - Pneumonia [None]
  - Dyspnoea [None]
  - Fatigue [None]
  - Rash [None]
